FAERS Safety Report 8913312 (Version 1)
Quarter: 2012Q4

REPORT INFORMATION
  Report Type: Spontaneous
  Country: US (occurrence: None)
  Receive Date: 20121114
  Receipt Date: 20121114
  Transmission Date: 20130627
  Serious: Yes (Death, Hospitalization)
  Sender: FDA-Public Use
  Company Number: 2012US-004446

PATIENT
  Age: 88 Year
  Sex: Female

DRUGS (5)
  1. OMONTYS (PEGINESATIDE) SOLUTION FOR INJECTION [Suspect]
     Indication: NEPHROGENIC ANAEMIA
     Route: 042
     Dates: start: 20120921, end: 20120921
  2. EPOGEN (EPOETIN ALFA) [Concomitant]
  3. ANTIHYPERTENSIVES [Concomitant]
  4. ANTIDIABETICS [Concomitant]
  5. ANTIBIOTICS [Concomitant]

REACTIONS (4)
  - Hypotension [None]
  - Sepsis [None]
  - Infection [None]
  - Disease recurrence [None]
